FAERS Safety Report 16641912 (Version 5)
Quarter: 2019Q4

REPORT INFORMATION
  Report Type: Spontaneous
  Country: CA (occurrence: CA)
  Receive Date: 20190729
  Receipt Date: 20191008
  Transmission Date: 20200122
  Serious: Yes (Other)
  Sender: FDA-Public Use
  Company Number: CA-PFIZER INC-2019312728

PATIENT
  Age: 34 Year
  Sex: Male
  Weight: 98 kg

DRUGS (7)
  1. DOSTINEX [Concomitant]
     Active Substance: CABERGOLINE
     Dosage: 5 MG X 2 EVERYWEEK
  2. SOMAVERT [Suspect]
     Active Substance: PEGVISOMANT
     Indication: ACROMEGALY
     Dosage: 10 MG /DAY
     Route: 058
     Dates: start: 201903
  3. OMEGA 3 [Concomitant]
     Active Substance: OMEGA-3 FATTY ACIDS
     Dosage: UNK
  4. SANDOSTATIN [Concomitant]
     Active Substance: OCTREOTIDE ACETATE
     Dosage: 20 MG BIWEEKLY
     Route: 030
  5. TESTOSTERONE. [Concomitant]
     Active Substance: TESTOSTERONE
     Dosage: 5 MG/DAY
  6. VITAMIN B12 [Concomitant]
     Active Substance: CYANOCOBALAMIN
     Dosage: UNK
     Dates: start: 201810
  7. ANDROGEL [Concomitant]
     Active Substance: TESTOSTERONE
     Dosage: UNK

REACTIONS (4)
  - Neoplasm [Unknown]
  - Hypogonadism [Not Recovered/Not Resolved]
  - Hypothalamo-pituitary disorder [Unknown]
  - Blood iron decreased [Unknown]
